FAERS Safety Report 11366066 (Version 1)
Quarter: 2015Q3

REPORT INFORMATION
  Report Type: Report from Study
  Country: AR (occurrence: AR)
  Receive Date: 20150811
  Receipt Date: 20150811
  Transmission Date: 20151125
  Serious: Yes (Other)
  Sender: FDA-Public Use
  Company Number: AR-ABBVIE-15P-299-1442581-00

PATIENT
  Age: 38 Year
  Sex: Female

DRUGS (5)
  1. REYATAZ [Suspect]
     Active Substance: ATAZANAVIR SULFATE
     Indication: HIV INFECTION
     Dosage: 1 COURSE, PRIOR TO CONCEPTION
     Route: 048
     Dates: start: 20110516, end: 20140721
  2. LAMIVUDINE AND ZIDOVUDINE [Suspect]
     Active Substance: LAMIVUDINE\ZIDOVUDINE
     Indication: HIV INFECTION
     Dosage: 1 COURSE, NOT PRIOR TO CONCEPTION, FIRST TRIMESTER EARLIEST EXPOSURE
     Route: 048
     Dates: start: 20140721
  3. SELZENTRY [Suspect]
     Active Substance: MARAVIROC
     Indication: HIV INFECTION
     Dosage: 1 COURSE, PRIOR TO CONCEPTION
     Route: 048
     Dates: start: 20130425, end: 20140721
  4. KALETRA [Suspect]
     Active Substance: LOPINAVIR\RITONAVIR
     Indication: HIV INFECTION
     Dosage: 1 COURSE, NOT PRIOR TO CONCEPTION, FIRST TRIMESTER EARLIEST EXPOSURE
     Route: 048
     Dates: start: 20140721
  5. NORVIR [Suspect]
     Active Substance: RITONAVIR
     Indication: HIV INFECTION
     Dosage: 1 COURSE, PRIOR TO CONCEPTION
     Route: 048
     Dates: start: 20110516, end: 20140721

REACTIONS (2)
  - Abortion spontaneous [Unknown]
  - Exposure during pregnancy [Unknown]

NARRATIVE: CASE EVENT DATE: 20140908
